FAERS Safety Report 19085296 (Version 2)
Quarter: 2021Q2

REPORT INFORMATION
  Report Type: Spontaneous
  Country: BR (occurrence: BR)
  Receive Date: 20210401
  Receipt Date: 20210416
  Transmission Date: 20210717
  Serious: Yes (Hospitalization, Other)
  Sender: FDA-Public Use
  Company Number: BR-ASTRAZENECA-2021A224612

PATIENT
  Age: 766 Month
  Sex: Female

DRUGS (2)
  1. SYMBICORT [Suspect]
     Active Substance: BUDESONIDE\FORMOTEROL FUMARATE DIHYDRATE
     Indication: ASTHMA
     Dosage: 160/4.5 MCG, TWO JETS BY THE MORNING AND TWO JETS AT NIGHT
     Route: 055
     Dates: start: 202005, end: 202007
  2. SYMBICORT [Suspect]
     Active Substance: BUDESONIDE\FORMOTEROL FUMARATE DIHYDRATE
     Indication: ASTHMA
     Dosage: 160/4.5 MCG, ONE JET BY THE MORNING, ONE JET IN THE AFERTNOON AND ONE JET AT NIGHT
     Route: 055
     Dates: start: 202007

REACTIONS (4)
  - Hypertension [Unknown]
  - Headache [Recovered/Resolved]
  - Device issue [Recovered/Resolved]
  - Asthma [Recovered/Resolved]

NARRATIVE: CASE EVENT DATE: 202007
